FAERS Safety Report 25117927 (Version 1)
Quarter: 2025Q1

REPORT INFORMATION
  Report Type: Spontaneous
  Country: US (occurrence: US)
  Receive Date: 20250325
  Receipt Date: 20250325
  Transmission Date: 20250409
  Serious: Yes (Other)
  Sender: GLAXOSMITHKLINE
  Company Number: US-GSK-US2025AMR034482

PATIENT
  Sex: Female

DRUGS (1)
  1. JEMPERLI [Suspect]
     Active Substance: DOSTARLIMAB-GXLY
     Indication: Endometrial cancer
     Dosage: 1000 MG, Q6W
     Route: 042
     Dates: start: 202311

REACTIONS (2)
  - Neuropathy peripheral [Not Recovered/Not Resolved]
  - Depression [Not Recovered/Not Resolved]
